FAERS Safety Report 16502378 (Version 1)
Quarter: 2019Q3

REPORT INFORMATION
  Report Type: Spontaneous
  Country: US (occurrence: US)
  Receive Date: 20190701
  Receipt Date: 20190701
  Transmission Date: 20191004
  Serious: Yes (Hospitalization)
  Sender: FDA-Public Use
  Company Number: US-AMREGENT-20191288

PATIENT
  Age: 45 Year
  Sex: Male

DRUGS (6)
  1. ESMOLOL HYDROCHLORIDE INJECTION (0517-1810-01) [Suspect]
     Active Substance: ESMOLOL HYDROCHLORIDE
     Dosage: UNKNOWN
     Route: 042
  2. PHENYLEPHRINE HCL [Suspect]
     Active Substance: PHENYLEPHRINE HYDROCHLORIDE
     Dosage: UNKNOWN
     Route: 042
  3. POTASSIUM [Concomitant]
     Active Substance: POTASSIUM
     Dosage: UNKNOWN
     Route: 065
  4. LORAZEPAM. [Concomitant]
     Active Substance: LORAZEPAM
     Dosage: UNKNOWN
     Route: 042
  5. PROPRANOLOL [Concomitant]
     Active Substance: PROPRANOLOL HYDROCHLORIDE
     Dosage: 60 MG
     Route: 050
  6. CLENBUTEROL [Concomitant]
     Active Substance: CLENBUTEROL
     Dosage: 80 UG 4X/WK
     Route: 065

REACTIONS (3)
  - Shock [Recovering/Resolving]
  - Tachyarrhythmia [Recovering/Resolving]
  - Product use in unapproved indication [Recovered/Resolved]
